FAERS Safety Report 10240799 (Version 1)
Quarter: 2014Q2

REPORT INFORMATION
  Report Type: Spontaneous
  Country: US (occurrence: US)
  Receive Date: 20140617
  Receipt Date: 20140617
  Transmission Date: 20141212
  Serious: No
  Sender: FDA-Public Use
  Company Number: US-PFIZER INC-2014161298

PATIENT
  Sex: Male

DRUGS (2)
  1. VIAGRA [Suspect]
     Dosage: 50 MG, UNK (2 X 25MG TABLETS 2 HOURS AGO)
  2. VIAGRA [Suspect]
     Dosage: 25 MG, UNK

REACTIONS (1)
  - Erection increased [Unknown]
